FAERS Safety Report 15715835 (Version 2)
Quarter: 2019Q1

REPORT INFORMATION
  Report Type: Spontaneous
  Country: US (occurrence: US)
  Receive Date: 20181212
  Receipt Date: 20190115
  Transmission Date: 20190417
  Serious: No
  Sender: FDA-Public Use
  Company Number: US-ASTRAZENECA-2018SF55751

PATIENT
  Sex: Female

DRUGS (1)
  1. BYDUREON [Suspect]
     Active Substance: EXENATIDE
     Route: 065
     Dates: start: 201810

REACTIONS (6)
  - Injection site nodule [Unknown]
  - Injection site pruritus [Unknown]
  - Product prescribing issue [Unknown]
  - Injection site discolouration [Unknown]
  - Injection site warmth [Unknown]
  - Injection site erythema [Unknown]
